FAERS Safety Report 10404465 (Version 1)
Quarter: 2014Q1

REPORT INFORMATION
  Report Type: Spontaneous
  Country: US (occurrence: None)
  Receive Date: 20140306
  Receipt Date: 20140306
  Transmission Date: 20141002
  Serious: Yes (Hospitalization, Other)
  Sender: FDA-Public Use
  Company Number: 163-21880-12081251

PATIENT
  Age: 67 Year
  Sex: Male
  Weight: 109.3 kg

DRUGS (13)
  1. REVLIMID (LENALIDOMIDE) (10 MILLIGRAM, CAPSULES) [Suspect]
     Indication: PLASMA CELL MYELOMA
     Dosage: 10 MG, 1 IN 1 D, PO
     Route: 048
     Dates: start: 20100226
  2. ASPIRIN (ACETYLSALCICLOVIR ACID) [Concomitant]
  3. LIPITOR (ATORVASTATIN) [Concomitant]
  4. AZITHROMYCIN [Concomitant]
  5. SUDAFED (PSEUDOEPHEDRINE HYDROCHLORIDE) [Concomitant]
  6. Q-TUSSIN (GUAIFENESIN) [Concomitant]
  7. VITAMIN B COMPLEX (B-KOMPLEX ^LECIVA) [Concomitant]
  8. METAMUCIL (METAMUCIL ^PROCTER + GAMBLE^) [Concomitant]
  9. METFORMIN [Concomitant]
  10. GLIPIZIDE [Concomitant]
  11. GLIPIZIDE [Concomitant]
  12. PLAVIX (CLOPIDOGREL SULFATE) [Concomitant]
  13. MULTIVITAMIN [Concomitant]

REACTIONS (5)
  - Urine flow decreased [None]
  - Pleural effusion [None]
  - Bronchitis [None]
  - Increased upper airway secretion [None]
  - Neuropathy peripheral [None]
